FAERS Safety Report 6101626-X (Version None)
Quarter: 2009Q1

REPORT INFORMATION
  Report Type: 
  Country: None (occurrence: None)
  Receive Date: 20090303
  Receipt Date: 20090303
  Transmission Date: 20090719
  Serious: Yes (Life-Threatening, Hospitalization)
  Sender: FDA-Public Use
  Company Number: None

PATIENT
  Age: 28 Year
  Sex: Female
  Weight: 68.0396 kg

DRUGS (2)
  1. METOPROLOL SUCCINATE [Suspect]
     Indication: HYPERTENSION
     Dosage: 50 MG 1 PER DAY
     Dates: start: 20081001, end: 20090224
  2. METOPROLOL SUCCINATE [Suspect]
     Indication: SINUS TACHYCARDIA
     Dosage: 50 MG 1 PER DAY
     Dates: start: 20081001, end: 20090224

REACTIONS (11)
  - ACTIVITIES OF DAILY LIVING IMPAIRED [None]
  - ASTHENIA [None]
  - CONVULSION [None]
  - DYSPEPSIA [None]
  - DYSSTASIA [None]
  - HYPERSOMNIA [None]
  - IMPAIRED WORK ABILITY [None]
  - LOSS OF CONSCIOUSNESS [None]
  - MALAISE [None]
  - PRODUCT QUALITY ISSUE [None]
  - SKIN DISCOLOURATION [None]
